FAERS Safety Report 5725491-5 (Version None)
Quarter: 2008Q2

REPORT INFORMATION
  Report Type: 
  Country: None (occurrence: None)
  Receive Date: 20080501
  Receipt Date: 20080421
  Transmission Date: 20081010
  Serious: Yes (Hospitalization)
  Sender: FDA-Public Use
  Company Number: FR-JNJFOC-20080407342

PATIENT
  Sex: Female

DRUGS (1)
  1. HALDOL [Suspect]
     Indication: DRUG USE FOR UNKNOWN INDICATION
     Route: 030

REACTIONS (6)
  - ATAXIA [None]
  - DRUG TOXICITY [None]
  - HALLUCINATION [None]
  - HOSPITALISATION [None]
  - LIBIDO DISORDER [None]
  - MENTAL IMPAIRMENT [None]
